FAERS Safety Report 10360556 (Version 2)
Quarter: 2014Q3

REPORT INFORMATION
  Report Type: Report from Study
  Country: BR (occurrence: BR)
  Receive Date: 20140804
  Receipt Date: 20140811
  Transmission Date: 20150326
  Serious: Yes (Other)
  Sender: FDA-Public Use
  Company Number: BR-ABBVIE-14K-020-1266323-00

PATIENT
  Age: 65 Year
  Sex: Female
  Weight: 89 kg

DRUGS (9)
  1. NOVALGIN [Concomitant]
     Active Substance: METAMIZOLE SODIUM
     Indication: PAIN
     Route: 048
  2. UNKNOWN MEDICATION [Suspect]
     Active Substance: UNSPECIFIED INGREDIENT
     Indication: HYPERTENSION
  3. ATENOLOL. [Concomitant]
     Active Substance: ATENOLOL
     Indication: HYPERTENSION
     Route: 048
  4. PREDNISONE. [Concomitant]
     Active Substance: PREDNISONE
     Indication: OEDEMA
     Route: 048
     Dates: start: 2011
  5. OLMESARTAN MEDOXOMIL [Concomitant]
     Active Substance: OLMESARTAN MEDOXOMIL
     Indication: HYPERTENSION
     Dosage: 40/05 MG
     Route: 048
  6. HUMIRA [Suspect]
     Active Substance: ADALIMUMAB
     Indication: PSORIATIC ARTHROPATHY
     Route: 058
     Dates: start: 20110727, end: 20120519
  7. PREDNISONE. [Concomitant]
     Active Substance: PREDNISONE
     Indication: PSORIATIC ARTHROPATHY
  8. ALDAZIDA [Concomitant]
     Indication: HYPERTENSION
     Dosage: HALF TABLET, ONCE A DAY
     Route: 048
     Dates: start: 2011
  9. VYTORIN [Concomitant]
     Active Substance: EZETIMIBE\SIMVASTATIN
     Indication: BLOOD CHOLESTEROL ABNORMAL
     Dosage: 10/10 MG
     Route: 048

REACTIONS (17)
  - Oedema peripheral [Not Recovered/Not Resolved]
  - Fat tissue increased [Not Recovered/Not Resolved]
  - Anxiety [Not Recovered/Not Resolved]
  - Diarrhoea [Recovering/Resolving]
  - Weight increased [Recovering/Resolving]
  - Insomnia [Not Recovered/Not Resolved]
  - Hepatomegaly [Not Recovered/Not Resolved]
  - Osteoarthritis [Unknown]
  - Stress [Unknown]
  - Arthropathy [Recovered/Resolved]
  - Diabetes mellitus [Not Recovered/Not Resolved]
  - Memory impairment [Not Recovered/Not Resolved]
  - Osteoarthritis [Recovering/Resolving]
  - Gait disturbance [Unknown]
  - Headache [Recovering/Resolving]
  - Abdominal pain [Recovering/Resolving]
  - Computerised tomogram abnormal [Unknown]

NARRATIVE: CASE EVENT DATE: 20110727
